FAERS Safety Report 12143458 (Version 1)
Quarter: 2016Q1

REPORT INFORMATION
  Report Type: Spontaneous
  Country: US (occurrence: US)
  Receive Date: 20160304
  Receipt Date: 20160304
  Transmission Date: 20160526
  Serious: No
  Sender: FDA-Public Use
  Company Number: US-JNJFOC-20160124937

PATIENT
  Age: 56 Year
  Sex: Female
  Weight: 93.9 kg

DRUGS (3)
  1. WOMENS ROGAINE UNSCENTED [Suspect]
     Active Substance: MINOXIDIL
     Indication: ALOPECIA
     Dosage: QUARTER SIZE AMOUNT.
     Route: 061
     Dates: start: 20160115
  2. WOMENS ROGAINE UNSCENTED [Suspect]
     Active Substance: MINOXIDIL
     Route: 061
  3. LISINOPRIL. [Concomitant]
     Active Substance: LISINOPRIL
     Indication: HYPERTENSION
     Dosage: DAILY
     Route: 065

REACTIONS (3)
  - Acne [Recovering/Resolving]
  - Pruritus [Recovering/Resolving]
  - Drug administration error [Recovering/Resolving]

NARRATIVE: CASE EVENT DATE: 20160115
